FAERS Safety Report 9240932 (Version 1)
Quarter: 2013Q2

REPORT INFORMATION
  Report Type: Spontaneous
  Country: AR (occurrence: AR)
  Receive Date: 20130418
  Receipt Date: 20130418
  Transmission Date: 20140414
  Serious: Yes (Other)
  Sender: FDA-Public Use
  Company Number: AR-AMGEN-ARGSP2013026677

PATIENT
  Age: 49 Year
  Sex: Female

DRUGS (1)
  1. ENBREL [Suspect]
     Indication: RHEUMATOID ARTHRITIS
     Dosage: 50 MG, WEEKLY
     Dates: start: 20060203

REACTIONS (5)
  - Arthropathy [Recovered/Resolved]
  - Eye disorder [Recovered/Resolved]
  - Limb injury [Recovered/Resolved]
  - Ligament rupture [Not Recovered/Not Resolved]
  - Lenticular opacities [Not Recovered/Not Resolved]
